FAERS Safety Report 7442432-3 (Version None)
Quarter: 2011Q2

REPORT INFORMATION
  Report Type: 
  Country: None (occurrence: None)
  Receive Date: 20110428
  Receipt Date: 20110419
  Transmission Date: 20111010
  Serious: Yes (Hospitalization, Disabling)
  Sender: FDA-Public Use
  Company Number: US-ASTRAZENECA-2010SE41967

PATIENT
  Age: 54 Year
  Sex: Female
  Weight: 91.6 kg

DRUGS (15)
  1. BENICAR [Concomitant]
  2. VYTORIN [Concomitant]
  3. ESTRATEST [Concomitant]
  4. RELPAX [Concomitant]
  5. GLUCOPHAGE [Concomitant]
  6. NOVOLIN N [Concomitant]
  7. OMEPRAZOLE [Concomitant]
  8. EFFEXOR [Concomitant]
  9. LEVONIR [Concomitant]
  10. BYSTOLIC [Concomitant]
  11. SYNTHROID [Concomitant]
  12. PREMARIN [Concomitant]
  13. SEROQUEL [Suspect]
     Indication: BIPOLAR I DISORDER
     Route: 048
     Dates: start: 20070101
  14. CLONIDINE [Concomitant]
  15. JANOVIA [Concomitant]

REACTIONS (10)
  - UPPER LIMB FRACTURE [None]
  - VITAMIN D DECREASED [None]
  - DRUG DOSE OMISSION [None]
  - PELVIC FRACTURE [None]
  - EMOTIONAL DISORDER [None]
  - ROAD TRAFFIC ACCIDENT [None]
  - LUMBAR VERTEBRAL FRACTURE [None]
  - JOINT DISLOCATION [None]
  - HEAD INJURY [None]
  - LACERATION [None]
